FAERS Safety Report 17063092 (Version 1)
Quarter: 2019Q4

REPORT INFORMATION
  Report Type: Spontaneous
  Country: GR (occurrence: GR)
  Receive Date: 20191122
  Receipt Date: 20191122
  Transmission Date: 20200122
  Serious: Yes (Hospitalization)
  Sender: FDA-Public Use
  Company Number: GR-BAUSCH-BL-2019-062192

PATIENT
  Age: 60 Year
  Sex: Male
  Weight: 70 kg

DRUGS (9)
  1. CORTIMENT (BUDESONIDE) [Suspect]
     Active Substance: BUDESONIDE
     Indication: COLITIS
     Route: 048
     Dates: start: 20191004, end: 20191010
  2. SALOFALK GR [Concomitant]
     Indication: PRODUCT USED FOR UNKNOWN INDICATION
  3. TAMSOL [Concomitant]
     Indication: PRODUCT USED FOR UNKNOWN INDICATION
  4. TEGRETOL [Interacting]
     Active Substance: CARBAMAZEPINE
     Indication: EPILEPSY
     Route: 048
  5. IDEOS [Concomitant]
     Active Substance: CALCIUM CARBONATE\CHOLECALCIFEROL
     Indication: PRODUCT USED FOR UNKNOWN INDICATION
  6. BRIVIACT [Concomitant]
     Active Substance: BRIVARACETAM
     Indication: PRODUCT USED FOR UNKNOWN INDICATION
  7. VIMPAT [Concomitant]
     Active Substance: LACOSAMIDE
     Indication: PRODUCT USED FOR UNKNOWN INDICATION
  8. CORTIMENT (BUDESONIDE) [Interacting]
     Active Substance: BUDESONIDE
     Indication: PRODUCT USE IN UNAPPROVED INDICATION
  9. TOPAMAC [Concomitant]
     Active Substance: TOPIRAMATE
     Indication: PRODUCT USED FOR UNKNOWN INDICATION

REACTIONS (5)
  - Drug interaction [Recovered/Resolved]
  - Asthenia [Recovered/Resolved]
  - Product use in unapproved indication [Recovered/Resolved]
  - Gait disturbance [Recovered/Resolved]
  - Paralysis [Recovered/Resolved]

NARRATIVE: CASE EVENT DATE: 20191004
